FAERS Safety Report 14181257 (Version 1)
Quarter: 2017Q4

REPORT INFORMATION
  Report Type: Spontaneous
  Country: TR (occurrence: TR)
  Receive Date: 20171112
  Receipt Date: 20171112
  Transmission Date: 20180321
  Serious: Yes (Other)
  Sender: FDA-Public Use
  Company Number: PHHY2017TR162493

PATIENT
  Age: 13 Year
  Sex: Female
  Weight: 39 kg

DRUGS (2)
  1. DEFERASIROX [Suspect]
     Active Substance: DEFERASIROX
     Dosage: 40 MG/KG, QD
     Route: 041
  2. DEFERASIROX [Suspect]
     Active Substance: DEFERASIROX
     Indication: THALASSAEMIA
     Dosage: 25 MG/KG, QD
     Route: 041

REACTIONS (7)
  - Abdominal pain [Recovered/Resolved]
  - Intentional self-injury [Recovered/Resolved]
  - Hyperammonaemia [Recovered/Resolved]
  - Tachypnoea [Recovered/Resolved]
  - Vomiting [Recovered/Resolved]
  - Delirium [Recovered/Resolved]
  - Agitation [Recovered/Resolved]
